FAERS Safety Report 5250761-7 (Version None)
Quarter: 2007Q1

REPORT INFORMATION
  Report Type: 
  Country: None (occurrence: None)
  Receive Date: 20070228
  Receipt Date: 20070221
  Transmission Date: 20070707
  Serious: Yes (Other)
  Sender: FDA-Public Use
  Company Number: US-ROCHE-478339

PATIENT
  Age: 59 Year
  Sex: Female
  Weight: 68.4 kg

DRUGS (5)
  1. BONIVA [Suspect]
     Indication: OSTEOPOROSIS
     Route: 048
     Dates: start: 20070108
  2. PROZAC [Concomitant]
     Indication: DEPRESSION
     Route: 048
     Dates: start: 20060322
  3. MULTIVITAMIN NOS [Concomitant]
     Dosage: WOMEN'S MULTI VITAMIN
     Route: 048
     Dates: start: 20061214
  4. CALCIUM/VITAMIN D [Concomitant]
     Dosage: OSTEO RENEW (CALCIUM CARBONATE/CHOLECALIFEROL)
     Route: 048
     Dates: start: 20061214
  5. CHONDROITIN SULFATE/GLUCOSAMINE [Concomitant]
     Indication: OSTEOARTHRITIS
     Dosage: MOVE FREE (GLUCOSAMINE HCL/CHONDROITIN SULFATE)
     Route: 048
     Dates: start: 20061214

REACTIONS (2)
  - HYPERSENSITIVITY [None]
  - PAIN [None]
